FAERS Safety Report 9803197 (Version 1)
Quarter: 2014Q1

REPORT INFORMATION
  Report Type: Spontaneous
  Country: US (occurrence: US)
  Receive Date: 20140108
  Receipt Date: 20140108
  Transmission Date: 20141002
  Serious: Yes (Other)
  Sender: FDA-Public Use
  Company Number: US-PFIZER INC-2014002626

PATIENT
  Sex: 0

DRUGS (6)
  1. LYRICA [Suspect]
     Dosage: UNK
  2. GABAPENTIN [Suspect]
     Dosage: UNK
  3. TRAMADOL HCL [Suspect]
     Dosage: UNK
  4. LIDOCAINE [Suspect]
     Dosage: UNK
  5. CYMBALTA [Suspect]
     Dosage: UNK
  6. NORCO [Suspect]
     Dosage: UNK

REACTIONS (3)
  - Pain [Unknown]
  - Thinking abnormal [Unknown]
  - Drug ineffective [Unknown]
